FAERS Safety Report 25813781 (Version 4)
Quarter: 2025Q3

REPORT INFORMATION
  Report Type: Spontaneous
  Country: US (occurrence: US)
  Receive Date: 20250917
  Receipt Date: 20250929
  Transmission Date: 20251021
  Serious: Yes (Death, Other)
  Sender: BIOVITRUM
  Company Number: US-BIOVITRUM-2025-US-012741

PATIENT
  Age: 68 Year
  Sex: Female

DRUGS (9)
  1. DOPTELET [Suspect]
     Active Substance: AVATROMBOPAG MALEATE
     Indication: Platelet count decreased
  2. DOPTELET [Suspect]
     Active Substance: AVATROMBOPAG MALEATE
     Dates: end: 20250907
  3. DOPTELET [Suspect]
     Active Substance: AVATROMBOPAG MALEATE
  4. GABAPENTIN [Concomitant]
     Active Substance: GABAPENTIN
     Indication: Product used for unknown indication
  5. LISINOPRIL [Concomitant]
     Active Substance: LISINOPRIL
     Indication: Product used for unknown indication
  6. MELOXICAM [Concomitant]
     Active Substance: MELOXICAM
     Indication: Product used for unknown indication
  7. VITAMIN D3 [Concomitant]
     Active Substance: CHOLECALCIFEROL
     Indication: Product used for unknown indication
  8. VITAMIN B12 [Concomitant]
     Active Substance: CYANOCOBALAMIN
     Indication: Product used for unknown indication
  9. IRON [Concomitant]
     Active Substance: IRON
     Indication: Product used for unknown indication

REACTIONS (5)
  - Cardiac failure congestive [Fatal]
  - Rheumatoid arthritis [Unknown]
  - Osteoarthritis [Unknown]
  - Osteoporosis [Unknown]
  - Intentional product misuse [Recovered/Resolved]
